FAERS Safety Report 6681160-9 (Version None)
Quarter: 2010Q2

REPORT INFORMATION
  Report Type: 
  Country: None (occurrence: None)
  Receive Date: 20100414
  Receipt Date: 20100402
  Transmission Date: 20101027
  Serious: Yes (Hospitalization)
  Sender: FDA-Public Use
  Company Number: US-ROCHE-695791

PATIENT

DRUGS (2)
  1. BEVACIZUMAB [Suspect]
     Dosage: OVER 90-30 MIN ON DAY 01 AND 15
     Route: 042
     Dates: start: 20090326
  2. AZD 2171 [Suspect]
     Dosage: ON DAY 01 AND 21. LAST DOSE PRIOR TO SAE: 06 AUGUST 2009.
     Route: 048
     Dates: start: 20090326

REACTIONS (3)
  - HYPOPHOSPHATAEMIA [None]
  - NAUSEA [None]
  - VOMITING [None]
